FAERS Safety Report 9571341 (Version 1)
Quarter: 2013Q4

REPORT INFORMATION
  Report Type: Spontaneous
  Country: FI (occurrence: FI)
  Receive Date: 20131001
  Receipt Date: 20131001
  Transmission Date: 20140711
  Serious: Yes (Other)
  Sender: FDA-Public Use
  Company Number: FI-JNJFOC-20130917848

PATIENT
  Age: 53 Year
  Sex: Female

DRUGS (6)
  1. XARELTO [Suspect]
     Indication: THROMBOSIS PROPHYLAXIS
     Route: 048
  2. XARELTO [Suspect]
     Indication: THROMBOSIS PROPHYLAXIS
     Route: 048
     Dates: start: 20130822, end: 20130921
  3. XARELTO [Suspect]
     Indication: PULMONARY EMBOLISM
     Route: 048
  4. XARELTO [Suspect]
     Indication: PULMONARY EMBOLISM
     Route: 048
     Dates: start: 20130822, end: 20130921
  5. ADALAT [Concomitant]
     Route: 065
  6. EMCONCOR [Concomitant]
     Route: 065

REACTIONS (3)
  - Deep vein thrombosis [Not Recovered/Not Resolved]
  - Local swelling [Unknown]
  - Pain in extremity [Unknown]
